FAERS Safety Report 4601829-7 (Version None)
Quarter: 2005Q1

REPORT INFORMATION
  Report Type: 
  Country: None (occurrence: None)
  Receive Date: 20050131
  Receipt Date: 20041013
  Transmission Date: 20050727
  Serious: No
  Sender: FDA-Public Use
  Company Number: 200417886US

PATIENT
  Age: 48 Year
  Sex: Female
  Weight: 50 kg

DRUGS (6)
  1. KETEK [Suspect]
     Indication: SINUSITIS
     Dosage: 800 (X 10 DAYS) MG QD PO
     Route: 048
  2. PREDNISONE [Concomitant]
  3. PHENYLEPHRINE HYDROCHLORIDE [Concomitant]
  4. GUAIFENESIN [Concomitant]
  5. PHENYLPROPANOLAINE HYDROCHLORIDE (ENTEX) [Concomitant]
  6. NASACORT AQ [Concomitant]

REACTIONS (2)
  - NIGHT SWEATS [None]
  - VISION BLURRED [None]
